FAERS Safety Report 11383802 (Version 1)
Quarter: 2015Q3

REPORT INFORMATION
  Report Type: Spontaneous
  Country: LB (occurrence: LB)
  Receive Date: 20150814
  Receipt Date: 20150814
  Transmission Date: 20151125
  Serious: Yes (Other)
  Sender: FDA-Public Use
  Company Number: LB-GLAXOSMITHKLINE-LB2014GSK039745

PATIENT
  Age: 35 Year
  Sex: Female

DRUGS (2)
  1. DUAC [Suspect]
     Active Substance: BENZOYL PEROXIDE\CLINDAMYCIN PHOSPHATE
     Dosage: UNK
     Dates: start: 20141212, end: 20141213
  2. DUAC [Suspect]
     Active Substance: BENZOYL PEROXIDE\CLINDAMYCIN PHOSPHATE
     Indication: ACNE
     Dosage: UNK
     Route: 061
     Dates: start: 20141217, end: 20141218

REACTIONS (5)
  - Laryngeal oedema [Unknown]
  - Face oedema [Unknown]
  - Eyelid oedema [Recovered/Resolved]
  - Erythema [Unknown]
  - Application site erythema [Recovering/Resolving]

NARRATIVE: CASE EVENT DATE: 20141213
